FAERS Safety Report 18618463 (Version 1)
Quarter: 2020Q4

REPORT INFORMATION
  Report Type: Spontaneous
  Country: US (occurrence: US)
  Receive Date: 20201215
  Receipt Date: 20201215
  Transmission Date: 20210114
  Serious: No
  Sender: FDA-Public Use
  Company Number: US-PFIZER INC-2020488088

PATIENT
  Age: 85 Year
  Sex: Male

DRUGS (3)
  1. VYNDAMAX [Suspect]
     Active Substance: TAFAMIDIS
     Indication: AMYLOIDOSIS
     Dosage: 80 MG, 1X/DAY (VYNDAMAX 80 MG: ONE 80 MG TAFAMIDIS CAPSULE ORALLY ONCE A DAY)
     Route: 048
  2. VYNDAMAX [Suspect]
     Active Substance: TAFAMIDIS
     Dosage: 80 MG, DAILY; (20 MG = 4 CAPSULES DAILY)
     Route: 048
  3. VYNDAMAX [Suspect]
     Active Substance: TAFAMIDIS
     Dosage: 61 MG; (DOSAGE: 61 MG)

REACTIONS (2)
  - Product prescribing error [Unknown]
  - Dyspnoea [Unknown]
